FAERS Safety Report 11300877 (Version 1)
Quarter: 2015Q3

REPORT INFORMATION
  Report Type: Spontaneous
  Country: US (occurrence: US)
  Receive Date: 20150722
  Receipt Date: 20150722
  Transmission Date: 20151125
  Serious: No
  Sender: FDA-Public Use
  Company Number: US-ELI_LILLY_AND_COMPANY-US201010000981

PATIENT
  Sex: Female

DRUGS (10)
  1. LIDOCAINE. [Concomitant]
     Active Substance: LIDOCAINE
  2. VITAMIN D3 [Concomitant]
     Active Substance: CHOLECALCIFEROL
  3. PANTETHINE [Concomitant]
     Active Substance: PANTETHINE
  4. LEVOXYL [Concomitant]
     Active Substance: LEVOTHYROXINE SODIUM
  5. EVISTA [Suspect]
     Active Substance: RALOXIFENE HYDROCHLORIDE
     Indication: OSTEOPOROSIS
     Dosage: 60 MG, DAILY (1/D)
     Dates: start: 199803
  6. CALCIUM [Concomitant]
     Active Substance: CALCIUM
     Dosage: 750 MG, UNK
  7. CITRACAL                           /00751520/ [Concomitant]
  8. OMEGA 3 FISH OIL [Concomitant]
     Active Substance: FISH OIL\OMEGA-3 FATTY ACIDS
  9. COENZYME Q10 [Concomitant]
     Active Substance: UBIDECARENONE
  10. SUPER B COMPLEX                    /06817001/ [Concomitant]

REACTIONS (19)
  - Ligament sprain [Unknown]
  - Pain in extremity [Unknown]
  - Acrochordon [Unknown]
  - Back pain [Unknown]
  - Skin discolouration [Unknown]
  - Bone density decreased [Unknown]
  - Ill-defined disorder [Unknown]
  - Road traffic accident [Unknown]
  - Fall [Recovered/Resolved with Sequelae]
  - Musculoskeletal pain [Unknown]
  - Drug hypersensitivity [Unknown]
  - Spinal column injury [Unknown]
  - Rib fracture [Recovered/Resolved]
  - Intervertebral disc protrusion [Unknown]
  - Suture insertion [Unknown]
  - Neck pain [Unknown]
  - Pain [Recovered/Resolved]
  - Dizziness [Unknown]
  - Post-traumatic neck syndrome [Unknown]
